FAERS Safety Report 23278882 (Version 1)
Quarter: 2023Q4

REPORT INFORMATION
  Report Type: Spontaneous
  Country: FR (occurrence: FR)
  Receive Date: 20231208
  Receipt Date: 20231208
  Transmission Date: 20240110
  Serious: Yes (Other)
  Sender: FDA-Public Use
  Company Number: FR-002147023-PHHY2019FR128033

PATIENT
  Age: 50 Year
  Sex: Female

DRUGS (9)
  1. BACLOFEN [Suspect]
     Active Substance: BACLOFEN
     Indication: Alcoholism
     Dosage: UNK; STOP DATE: ON JANUARY2013
     Route: 048
     Dates: start: 2012, end: 201301
  2. CYMBALTA [Suspect]
     Active Substance: DULOXETINE HYDROCHLORIDE
     Indication: Depression
     Dosage: 1 DF, QD
     Route: 048
     Dates: start: 2016
  3. EFFEXOR [Suspect]
     Active Substance: VENLAFAXINE HYDROCHLORIDE
     Indication: Depression
     Dosage: UNK; STOP DATE: AT 2015
     Route: 048
     Dates: start: 201209, end: 2015
  4. GABAPENTIN [Suspect]
     Active Substance: GABAPENTIN
     Indication: Neuropathy vitamin B12 deficiency
     Dosage: 1 DF, QD
     Route: 048
     Dates: start: 2016
  5. AMITRIPTYLINE HYDROCHLORIDE [Suspect]
     Active Substance: AMITRIPTYLINE HYDROCHLORIDE
     Indication: Neuropathy vitamin B12 deficiency
     Dosage: 1 DF, QD
     Route: 048
     Dates: start: 201801
  6. METHOTREXATE [Suspect]
     Active Substance: METHOTREXATE
     Indication: Psoriasis
     Dosage: 1 DF, QW
     Route: 058
     Dates: start: 201801
  7. LORMETAZEPAM [Suspect]
     Active Substance: LORMETAZEPAM
     Indication: Sleep disorder
     Dosage: UNK; STOP DATE: ON FEBRUARY 2018
     Route: 048
     Dates: start: 201410, end: 201802
  8. OXAZEPAM [Suspect]
     Active Substance: OXAZEPAM
     Indication: Sleep disorder
     Dosage: 1 DF, QD
     Route: 048
     Dates: start: 201410
  9. ESCITALOPRAM OXALATE [Suspect]
     Active Substance: ESCITALOPRAM OXALATE
     Indication: Depression
     Dosage: UNK; STOP DATE: ON DECEMBER 2014
     Route: 048
     Dates: start: 201410, end: 201412

REACTIONS (1)
  - Mitral valve incompetence [Not Recovered/Not Resolved]

NARRATIVE: CASE EVENT DATE: 20181001
